FAERS Safety Report 7098851-0 (Version None)
Quarter: 2010Q4

REPORT INFORMATION
  Report Type: 
  Country: None (occurrence: None)
  Receive Date: 20101112
  Receipt Date: 20101104
  Transmission Date: 20110411
  Serious: Yes (Other)
  Sender: FDA-Public Use
  Company Number: US-JNJCH-2010025668

PATIENT
  Age: 73 Year
  Sex: Male
  Weight: 74.4 kg

DRUGS (1)
  1. NEOSPORIN [Suspect]
     Indication: RHINITIS
     Dosage: TEXT:^JUST ENOUGH TO PUT ON QTIP^ 1-2X DAILY
     Route: 045

REACTIONS (4)
  - AMNESIA [None]
  - EXPIRED DRUG ADMINISTERED [None]
  - INCORRECT ROUTE OF DRUG ADMINISTRATION [None]
  - OFF LABEL USE [None]
